FAERS Safety Report 12664364 (Version 2)
Quarter: 2016Q4

REPORT INFORMATION
  Report Type: Spontaneous
  Country: NL (occurrence: NL)
  Receive Date: 20160818
  Receipt Date: 20161130
  Transmission Date: 20170207
  Serious: Yes (Hospitalization)
  Sender: FDA-Public Use
  Company Number: NL-IMPAX LABORATORIES, INC-2016-IPXL-00882

PATIENT
  Age: 23 Year
  Sex: Male

DRUGS (4)
  1. BACLOFEN. [Suspect]
     Active Substance: BACLOFEN
     Dosage: UNK
     Route: 065
  2. BACLOFEN. [Suspect]
     Active Substance: BACLOFEN
     Dosage: 2700 MG, UNK
     Route: 065
  3. MIRTAZAPINE. [Suspect]
     Active Substance: MIRTAZAPINE
     Indication: PRODUCT USED FOR UNKNOWN INDICATION
     Dosage: 330 MG, UNK
     Route: 065
  4. BACLOFEN. [Suspect]
     Active Substance: BACLOFEN
     Indication: ALCOHOLISM
     Dosage: 40 MG, 3 /DAY
     Route: 065

REACTIONS (7)
  - Intentional overdose [Unknown]
  - Respiratory failure [Unknown]
  - Off label use [Unknown]
  - Suicide attempt [Unknown]
  - Drug withdrawal syndrome [Recovered/Resolved]
  - Poisoning [Unknown]
  - Delirium [Recovered/Resolved]
